FAERS Safety Report 12834511 (Version 5)
Quarter: 2017Q1

REPORT INFORMATION
  Report Type: Spontaneous
  Country: US (occurrence: US)
  Receive Date: 20161010
  Receipt Date: 20170105
  Transmission Date: 20170428
  Serious: Yes (Hospitalization, Other)
  Sender: FDA-Public Use
  Company Number: US-PFIZER INC-2016463038

PATIENT
  Age: 76 Year
  Sex: Female
  Weight: 75 kg

DRUGS (3)
  1. XELJANZ [Suspect]
     Active Substance: TOFACITINIB CITRATE
     Indication: RHEUMATOID ARTHRITIS
     Dosage: 5 MG, 2X/DAY (ONE IN THE MORNING AND ONE IN THE EVENING)
     Dates: start: 20160908, end: 20161002
  2. XELJANZ [Suspect]
     Active Substance: TOFACITINIB CITRATE
     Dosage: 5 MG, 2X/DAY (BID)
     Route: 048
     Dates: start: 20160907, end: 201610
  3. PREDNISONE. [Concomitant]
     Active Substance: PREDNISONE
     Indication: RHEUMATOID ARTHRITIS
     Dosage: 5 MG/ML

REACTIONS (12)
  - Gastrointestinal perforation [Unknown]
  - Insomnia [Recovering/Resolving]
  - Abdominal pain upper [Not Recovered/Not Resolved]
  - Feeling abnormal [Recovered/Resolved]
  - Musculoskeletal stiffness [Unknown]
  - Abdominal discomfort [Recovered/Resolved]
  - Drug dose omission [Unknown]
  - Constipation [Recovering/Resolving]
  - Gastrointestinal disorder [Not Recovered/Not Resolved]
  - Swelling [Recovered/Resolved]
  - Malaise [Unknown]
  - Gastrointestinal pain [Not Recovered/Not Resolved]
